FAERS Safety Report 6931229-6 (Version None)
Quarter: 2010Q3

REPORT INFORMATION
  Report Type: 
  Country: None (occurrence: None)
  Receive Date: 20100816
  Receipt Date: 20100805
  Transmission Date: 20110219
  Serious: Yes (Other)
  Sender: FDA-Public Use
  Company Number: 016764

PATIENT
  Age: 59 Year
  Sex: Female

DRUGS (2)
  1. ISOSORBIDE DINITRATE [Suspect]
     Dosage: 0.5MG/ML
  2. REGULAR INSULIN [Suspect]

REACTIONS (4)
  - CARDIAC FAILURE [None]
  - DIABETES MELLITUS INADEQUATE CONTROL [None]
  - MALAISE [None]
  - RENAL FAILURE [None]
